FAERS Safety Report 4847644-0 (Version None)
Quarter: 2005Q4

REPORT INFORMATION
  Report Type: 
  Country: None (occurrence: None)
  Receive Date: 20051205
  Receipt Date: 20051117
  Transmission Date: 20060501
  Serious: Yes (Death, Life-Threatening)
  Sender: FDA-Public Use
  Company Number: 2005149522

PATIENT
  Age: 65 Year
  Sex: Female

DRUGS (2)
  1. ZITHROMAX [Suspect]
     Indication: PNEUMONIA
     Dosage: 500 MG (500 MG, OD), INTRAVENOUS
     Route: 042
     Dates: start: 20051031, end: 20051102
  2. CEFTAZIDIME SODIUM [Concomitant]

REACTIONS (7)
  - ACUTE ABDOMEN [None]
  - CARDIAC ARREST [None]
  - COMA [None]
  - CYANOSIS [None]
  - DYSPNOEA [None]
  - ELECTROCARDIOGRAM T WAVE INVERSION [None]
  - PERFORATED ULCER [None]
